FAERS Safety Report 11339203 (Version 1)
Quarter: 2015Q3

REPORT INFORMATION
  Report Type: Spontaneous
  Country: US (occurrence: US)
  Receive Date: 20150803
  Receipt Date: 20150803
  Transmission Date: 20151125
  Serious: No
  Sender: FDA-Public Use
  Company Number: US-ELI_LILLY_AND_COMPANY-US200907006852

PATIENT
  Age: 7 Year
  Sex: Female
  Weight: 27.21 kg

DRUGS (1)
  1. STRATTERA [Suspect]
     Active Substance: ATOMOXETINE HYDROCHLORIDE
     Indication: ATTENTION DEFICIT/HYPERACTIVITY DISORDER
     Dosage: 80 MG, DAILY (1/D)
     Route: 065

REACTIONS (3)
  - Prescribed overdose [Unknown]
  - Nausea [Recovered/Resolved]
  - Vomiting [Recovered/Resolved]
